FAERS Safety Report 7204005-7 (Version None)
Quarter: 2010Q4

REPORT INFORMATION
  Report Type: 
  Country: None (occurrence: None)
  Receive Date: 20101230
  Receipt Date: 20101220
  Transmission Date: 20110411
  Serious: Yes (Other)
  Sender: FDA-Public Use
  Company Number: US-PFIZER INC-2010176087

PATIENT
  Sex: Female

DRUGS (4)
  1. LYRICA [Suspect]
     Indication: PAIN
     Dosage: 25 MG, 1X/DAY
  2. LYRICA [Suspect]
     Dosage: 25 MG, 2X/DAY
  3. LYRICA [Suspect]
     Dosage: 50 MG, 2X/DAY
  4. LYRICA [Suspect]
     Dosage: 50 MG, 1X/DAY

REACTIONS (4)
  - BRADYPHRENIA [None]
  - DEPRESSION [None]
  - MEMORY IMPAIRMENT [None]
  - VISUAL ACUITY REDUCED [None]
